FAERS Safety Report 17241197 (Version 2)
Quarter: 2020Q1

REPORT INFORMATION
  Report Type: Spontaneous
  Country: DE (occurrence: DE)
  Receive Date: 20200107
  Receipt Date: 20200313
  Transmission Date: 20200409
  Serious: Yes (Other)
  Sender: FDA-Public Use
  Company Number: DE-PBT-000089

PATIENT
  Age: 21 Year

DRUGS (18)
  1. MYCOPHENOLATE MOFETIL. [Suspect]
     Active Substance: MYCOPHENOLATE MOFETIL
     Indication: PROPHYLAXIS AGAINST GRAFT VERSUS HOST DISEASE
     Dosage: 3X15MG/KG/DAY (DAYS+5 TO +35)
     Route: 065
  2. GRANULOCYTE COLONY STIMULATING FACTOR [Concomitant]
     Active Substance: GRANULOCYTE COLONY-STIMULATING FACTOR NOS
     Indication: PRODUCT USED FOR UNKNOWN INDICATION
     Dosage: 5 UG/KG/DAY FROM DAY +5 UNTIL ENGRAFTMENT
     Route: 065
  3. TREOSULFAN [Suspect]
     Active Substance: TREOSULFAN
     Indication: SICKLE CELL DISEASE
     Dosage: 14 G/M2, QD ON DAYS -7 TO -5
     Route: 065
  4. TREOSULFAN [Suspect]
     Active Substance: TREOSULFAN
     Indication: BONE MARROW CONDITIONING REGIMEN
     Dosage: 3X14 G/M2, QD ON DAYS -7 TO -5
     Route: 065
  5. FLUDARABINE PHOSPHATE. [Suspect]
     Active Substance: FLUDARABINE PHOSPHATE
     Indication: SICKLE CELL DISEASE
     Dosage: 30 MG/M2, QD, ON DAYS -7 TO -3
     Route: 065
  6. ALEMTUZUMAB [Suspect]
     Active Substance: ALEMTUZUMAB
     Indication: BONE MARROW CONDITIONING REGIMEN
     Dosage: 2X0.2 MG/KG, QD, ON DAYS -9 AND -8
     Route: 065
  7. RITUXIMAB. [Suspect]
     Active Substance: RITUXIMAB
     Indication: PRODUCT USED FOR UNKNOWN INDICATION
     Route: 065
  8. CYCLOPHOSPHAMIDE. [Suspect]
     Active Substance: CYCLOPHOSPHAMIDE
     Indication: PROPHYLAXIS AGAINST GRAFT VERSUS HOST DISEASE
     Dosage: 14.5 MG/KG, QD, ON DAYS -3 AND -2
     Route: 065
  9. CYCLOPHOSPHAMIDE. [Suspect]
     Active Substance: CYCLOPHOSPHAMIDE
     Indication: BONE MARROW CONDITIONING REGIMEN
     Dosage: 50 MG/KG, QD, ON DAYS +3 AND +4
     Route: 065
  10. CYCLOPHOSPHAMIDE. [Suspect]
     Active Substance: CYCLOPHOSPHAMIDE
     Indication: SICKLE CELL DISEASE
     Dosage: 50 MG/KG, QD, ON DAYS +3 AND +4
     Route: 065
  11. THIOTEPA. [Suspect]
     Active Substance: THIOTEPA
     Indication: SICKLE CELL DISEASE
     Dosage: 5 MG/KG, BID, DAY -4
     Route: 065
  12. ALEMTUZUMAB [Suspect]
     Active Substance: ALEMTUZUMAB
     Indication: SICKLE CELL DISEASE
     Dosage: 0.2 MG/KG, QD, ON DAYS -9 AND -8
     Route: 065
  13. FLUDARABINE PHOSPHATE. [Suspect]
     Active Substance: FLUDARABINE PHOSPHATE
     Indication: BONE MARROW CONDITIONING REGIMEN
     Dosage: 5X30 MG/M2, QD, ON DAYS -7 TO -3
     Route: 065
  14. CYCLOPHOSPHAMIDE. [Suspect]
     Active Substance: CYCLOPHOSPHAMIDE
     Indication: BONE MARROW CONDITIONING REGIMEN
     Dosage: 2X14.5 MG/KG, QD, ON DAYS -3 AND -2
     Route: 065
  15. CYCLOPHOSPHAMIDE. [Suspect]
     Active Substance: CYCLOPHOSPHAMIDE
     Indication: SICKLE CELL DISEASE
     Dosage: 14.5 MG/KG, QD, ON DAYS -3 AND -2
     Route: 065
  16. TACROLIMUS. [Suspect]
     Active Substance: TACROLIMUS
     Indication: PROPHYLAXIS AGAINST GRAFT VERSUS HOST DISEASE
     Dosage: DAYS +5 TO +100 WITH CONSECUTIVE TAPERING
     Route: 065
  17. CYCLOPHOSPHAMIDE. [Suspect]
     Active Substance: CYCLOPHOSPHAMIDE
     Indication: PROPHYLAXIS AGAINST GRAFT VERSUS HOST DISEASE
     Dosage: 50 MG/KG, QD, ON DAYS +3 AND +4
     Route: 065
  18. THIOTEPA. [Suspect]
     Active Substance: THIOTEPA
     Indication: BONE MARROW CONDITIONING REGIMEN
     Dosage: 2X5 MG/KG, BID, DAY -4
     Route: 065

REACTIONS (2)
  - Cytomegalovirus infection [Unknown]
  - Off label use [Unknown]
